FAERS Safety Report 5931654-6 (Version None)
Quarter: 2008Q4

REPORT INFORMATION
  Report Type: 
  Country: None (occurrence: None)
  Receive Date: 20081027
  Receipt Date: 20081016
  Transmission Date: 20090506
  Serious: Yes (Hospitalization)
  Sender: FDA-Public Use
  Company Number: JP-JNJFOC-20081004692

PATIENT
  Sex: Male
  Weight: 58 kg

DRUGS (10)
  1. TRAMADOL HCL [Suspect]
     Indication: PAIN
     Dosage: 1-2 TABLETS, 4 TIMES IN ONE DAY
     Route: 048
  2. KINEDAK [Concomitant]
     Indication: DIABETIC NEUROPATHY
     Route: 048
  3. MEXITIL [Concomitant]
     Indication: DIABETIC NEUROPATHY
     Route: 048
  4. ACTOS [Concomitant]
     Indication: TYPE 2 DIABETES MELLITUS
     Route: 048
  5. LEVEMIR [Concomitant]
     Indication: TYPE 2 DIABETES MELLITUS
     Dosage: FOLLOW PRESCRIPTION WRITTEN BY PHYSICIAN
     Route: 058
  6. GLIMICRON [Concomitant]
     Indication: TYPE 2 DIABETES MELLITUS
     Route: 048
  7. GANATON [Concomitant]
     Indication: GASTRITIS
     Route: 048
  8. RIKKUNSHI-TO [Concomitant]
     Indication: GASTRITIS
     Route: 048
  9. MOHRUS TAPE [Concomitant]
     Indication: NEURALGIA
     Route: 062
  10. RIZABEN [Concomitant]
     Indication: CONJUNCTIVITIS ALLERGIC
     Dosage: ADEQUATE DOSE 4 TIMES A DAY
     Route: 047

REACTIONS (1)
  - UPPER GASTROINTESTINAL HAEMORRHAGE [None]
